FAERS Safety Report 24032627 (Version 6)
Quarter: 2025Q1

REPORT INFORMATION
  Report Type: Spontaneous
  Country: JP (occurrence: JP)
  Receive Date: 20240701
  Receipt Date: 20250226
  Transmission Date: 20250408
  Serious: Yes (Hospitalization, Other)
  Sender: BRISTOL-MYERS SQUIBB COMPANY
  Company Number: JP-BRISTOL-MYERS SQUIBB COMPANY-2024-102129

PATIENT
  Age: 46 Year
  Sex: Male

DRUGS (2)
  1. YERVOY [Suspect]
     Active Substance: IPILIMUMAB
     Indication: Non-small cell lung cancer
     Route: 041
     Dates: start: 202205
  2. OPDIVO [Suspect]
     Active Substance: NIVOLUMAB
     Indication: Non-small cell lung cancer
     Route: 041
     Dates: start: 202205

REACTIONS (14)
  - Pyrexia [Unknown]
  - Myalgia [Unknown]
  - Erythema [Unknown]
  - Immune-mediated hepatic disorder [Unknown]
  - Dyspnoea [Unknown]
  - Immune-mediated mucositis [Unknown]
  - Immune-mediated dermatitis [Recovered/Resolved]
  - Blood creatine phosphokinase increased [Recovering/Resolving]
  - Stomatitis [Unknown]
  - Oxygen saturation decreased [Unknown]
  - Headache [Recovered/Resolved]
  - Immune-mediated lung disease [Recovered/Resolved]
  - Cytokine release syndrome [Unknown]
  - Cardiac failure [Unknown]

NARRATIVE: CASE EVENT DATE: 20230427
